FAERS Safety Report 11635427 (Version 1)
Quarter: 2015Q4

REPORT INFORMATION
  Report Type: Spontaneous
  Country: US (occurrence: US)
  Receive Date: 20151016
  Receipt Date: 20151016
  Transmission Date: 20160304
  Serious: No
  Sender: FDA-Public Use
  Company Number: AE/2011/US/034

PATIENT
  Age: 54 Year
  Sex: Female
  Weight: 59.09 kg

DRUGS (2)
  1. CEFADROXIL. [Suspect]
     Active Substance: CEFADROXIL
     Route: 048
     Dates: end: 20110613
  2. CEFADROXIL. [Suspect]
     Active Substance: CEFADROXIL
     Indication: LOCALISED INFECTION
     Route: 048
     Dates: start: 20110606, end: 20110607

REACTIONS (1)
  - Pruritus generalised [Not Recovered/Not Resolved]

NARRATIVE: CASE EVENT DATE: 20110608
